FAERS Safety Report 7749778-X (Version None)
Quarter: 2011Q3

REPORT INFORMATION
  Report Type: 
  Country: None (occurrence: None)
  Receive Date: 20110914
  Receipt Date: 20110907
  Transmission Date: 20111222
  Serious: Yes (Other)
  Sender: FDA-Public Use
  Company Number: US-AMGEN-USASP2011045884

PATIENT
  Sex: Female

DRUGS (3)
  1. EPOETIN ALFA [Suspect]
     Indication: PRODUCT USED FOR UNKNOWN INDICATION
     Dosage: UNK
  2. CYCLOSPORINE [Concomitant]
  3. PREDNISONE [Concomitant]

REACTIONS (3)
  - TRANSPLANT REJECTION [None]
  - APLASIA PURE RED CELL [None]
  - T-LYMPHOCYTE COUNT ABNORMAL [None]
